FAERS Safety Report 4978064-6 (Version None)
Quarter: 2006Q2

REPORT INFORMATION
  Report Type: 
  Country: None (occurrence: None)
  Receive Date: 20060414
  Receipt Date: 20060406
  Transmission Date: 20061013
  Serious: Yes (Other)
  Sender: FDA-Public Use
  Company Number: 2006-04-0249

PATIENT
  Age: 70 Year
  Sex: Male

DRUGS (2)
  1. TEMODAL [Suspect]
     Indication: METASTASES TO CENTRAL NERVOUS SYSTEM
     Dosage: 75 MG/M^2 QD ORAL
     Route: 048
     Dates: start: 20060301, end: 20060301
  2. RADIATION THERAPY [Concomitant]

REACTIONS (1)
  - URTICARIA [None]
